FAERS Safety Report 7012364-3 (Version None)
Quarter: 2010Q3

REPORT INFORMATION
  Report Type: 
  Country: None (occurrence: None)
  Receive Date: 20100924
  Receipt Date: 20100916
  Transmission Date: 20110219
  Serious: Yes (Hospitalization)
  Sender: FDA-Public Use
  Company Number: US-JNJFOC-20100906588

PATIENT
  Sex: Male
  Weight: 87.4 kg

DRUGS (10)
  1. REMICADE [Suspect]
     Indication: CROHN'S DISEASE
     Route: 042
  2. REMICADE [Suspect]
     Dosage: LAST REPORTED DOSE
     Route: 042
  3. 5-ASA [Concomitant]
  4. PROBIOTICS [Concomitant]
  5. FOLIC ACID [Concomitant]
  6. CALCIUM [Concomitant]
  7. PRILOSEC [Concomitant]
  8. PREDNISONE [Concomitant]
  9. ANTIBIOTICS [Concomitant]
  10. HUMIRA [Concomitant]

REACTIONS (1)
  - CROHN'S DISEASE [None]
